FAERS Safety Report 18517456 (Version 1)
Quarter: 2020Q4

REPORT INFORMATION
  Report Type: Spontaneous
  Country: CN (occurrence: CN)
  Receive Date: 20201118
  Receipt Date: 20201118
  Transmission Date: 20210114
  Serious: Yes (Hospitalization)
  Sender: FDA-Public Use
  Company Number: CN-PFIZER INC-2020451602

PATIENT
  Age: 5 Day
  Sex: Male
  Weight: 4.38 kg

DRUGS (2)
  1. AMPICILLIN SODIUM/SULBACTAM SODIUM [Suspect]
     Active Substance: AMPICILLIN SODIUM\SULBACTAM SODIUM
     Indication: NEONATAL PNEUMONIA
     Dosage: 0.2 G, 2X/DAY
     Route: 041
     Dates: start: 20200725, end: 20200803
  2. GLUCOSE [Concomitant]
     Active Substance: DEXTROSE
     Indication: VEHICLE SOLUTION USE
     Dosage: 8 ML, 2X/DAY
     Route: 041
     Dates: start: 20200725, end: 20200803

REACTIONS (3)
  - Faeces discoloured [Recovering/Resolving]
  - Diarrhoea neonatal [Recovering/Resolving]
  - Frequent bowel movements [Recovering/Resolving]

NARRATIVE: CASE EVENT DATE: 20200729
